FAERS Safety Report 5289191-0 (Version None)
Quarter: 2007Q1

REPORT INFORMATION
  Report Type: 
  Country: None (occurrence: None)
  Receive Date: 20070118
  Receipt Date: 20061220
  Transmission Date: 20070707
  Serious: Yes (Other)
  Sender: FDA-Public Use
  Company Number: HQWYE920222DEC06

PATIENT
  Age: 74 Year
  Sex: Female
  Weight: 51.76 kg

DRUGS (6)
  1. ADVIL PM [Suspect]
     Indication: INSOMNIA
     Dosage: 1 CAPLET, 1 TIME, ORAL
     Route: 048
     Dates: start: 20061201, end: 20061201
  2. ADVIL PM [Suspect]
     Indication: PAIN
     Dosage: 1 CAPLET, 1 TIME, ORAL
     Route: 048
     Dates: start: 20061201, end: 20061201
  3. NORVASC [Concomitant]
  4. SYNTHROID [Concomitant]
  5. ENALAPRIL MALEATE [Concomitant]
  6. ATIVAN [Concomitant]

REACTIONS (1)
  - DRUG EFFECT DECREASED [None]
